FAERS Safety Report 8414081-1 (Version None)
Quarter: 2012Q2

REPORT INFORMATION
  Report Type: 
  Country: None (occurrence: None)
  Receive Date: 20120605
  Receipt Date: 20120521
  Transmission Date: 20120825
  Serious: Yes (Hospitalization)
  Sender: FDA-Public Use
  Company Number: NL-MEDIMMUNE-MEDI-0014129

PATIENT
  Age: 8 Month
  Sex: Male
  Weight: 7.1 kg

DRUGS (3)
  1. SYNAGIS [Suspect]
     Route: 030
     Dates: start: 20111102, end: 20111102
  2. SYNAGIS [Suspect]
     Indication: PREMATURE BABY
     Route: 030
     Dates: start: 20111007, end: 20111007
  3. SYNAGIS [Suspect]
     Route: 030
     Dates: start: 20111130, end: 20111130

REACTIONS (3)
  - DYSPNOEA [None]
  - PYREXIA [None]
  - PALLOR [None]
